FAERS Safety Report 8912291 (Version 2)
Quarter: 2012Q4

REPORT INFORMATION
  Report Type: 
  Country: AU (occurrence: AU)
  Receive Date: 20121116
  Receipt Date: 20121204
  Transmission Date: 20130627
  Serious: Yes (Other)
  Sender: FDA-Public Use
  Company Number: AU-ACCORD-015231

PATIENT
  Age: 41 Year
  Sex: Female

DRUGS (2)
  1. PACLITAXEL [Suspect]
     Indication: OVARIAN ADENOCARCINOMA
  2. CARBOPLATIN [Suspect]
     Indication: OVARIAN ADENOCARCINOMA

REACTIONS (1)
  - Acute myeloid leukaemia [Recovered/Resolved]
